FAERS Safety Report 4880536-X (Version None)
Quarter: 2005Q4

REPORT INFORMATION
  Report Type: 
  Country: None (occurrence: None)
  Receive Date: 20051223
  Receipt Date: 20051116
  Transmission Date: 20060501
  Serious: No
  Sender: FDA-Public Use
  Company Number: 05P-163-0317364-00

PATIENT
  Age: 45 Year
  Sex: Female
  Weight: 74.8435 kg

DRUGS (5)
  1. HUMIRA [Suspect]
     Indication: RHEUMATOID ARTHRITIS
     Dosage: 40 MG, 1 IN 2 WK, SUBCUTANEOUS
     Route: 058
     Dates: start: 20030101
  2. METHYLPREDNISOLONE [Concomitant]
  3. MELOXICAM [Concomitant]
  4. NAPROXEN SODIUM [Concomitant]
  5. BONIVA [Concomitant]

REACTIONS (3)
  - ABDOMINAL PAIN UPPER [None]
  - HYPOAESTHESIA [None]
  - STOMACH DISCOMFORT [None]
